FAERS Safety Report 6371885-7 (Version None)
Quarter: 2009Q3

REPORT INFORMATION
  Report Type: 
  Country: None (occurrence: None)
  Receive Date: 20090923
  Receipt Date: 20090914
  Transmission Date: 20100115
  Serious: Yes (Hospitalization, Other)
  Sender: FDA-Public Use
  Company Number: PHHY2009BR27326

PATIENT
  Sex: Male

DRUGS (2)
  1. DIOVAN AMLO FIX [Suspect]
     Indication: HYPERTENSION
     Dosage: 320/10 MG 1 TABLET DAILY
     Route: 048
     Dates: start: 20090701
  2. ABLOK PLUS [Suspect]
     Indication: HYPERTENSION
     Dosage: 50/12.5 MG 1 TABLET DAILY
     Route: 048
     Dates: start: 20090701

REACTIONS (3)
  - HEADACHE [None]
  - HYPERTENSION [None]
  - INFARCTION [None]
